FAERS Safety Report 15634935 (Version 1)
Quarter: 2018Q4

REPORT INFORMATION
  Report Type: Report from Study
  Country: US (occurrence: US)
  Receive Date: 20181119
  Receipt Date: 20181119
  Transmission Date: 20190205
  Serious: Yes (Hospitalization, Other)
  Sender: FDA-Public Use
  Company Number: US-BAYER-2018-138615

PATIENT
  Age: 70 Year
  Sex: Male

DRUGS (4)
  1. STIVARGA [Suspect]
     Active Substance: REGORAFENIB
     Indication: COLORECTAL CANCER
     Dosage: DAILY DOSE 40 MG
     Route: 048
     Dates: start: 20180716, end: 2018
  2. STIVARGA [Suspect]
     Active Substance: REGORAFENIB
     Indication: COLORECTAL CANCER
     Dosage: 80 MG, DAILY
     Route: 048
     Dates: start: 20180806, end: 201808
  3. STIVARGA [Suspect]
     Active Substance: REGORAFENIB
     Indication: COLORECTAL CANCER
     Dosage: 80 MG, DAILY, DAYS 1-21 THEN OFF 7
     Dates: start: 20180709, end: 20180715
  4. STIVARGA [Suspect]
     Active Substance: REGORAFENIB
     Indication: COLORECTAL CANCER
     Dosage: 120 MG, DAILY DAYS 1-21 THEN OFF 7
     Route: 048
     Dates: start: 20180813, end: 20181024

REACTIONS (6)
  - Sepsis [Recovering/Resolving]
  - Off label use [None]
  - Ankle fracture [Not Recovered/Not Resolved]
  - Hospitalisation [Not Recovered/Not Resolved]
  - Urinary tract infection [Recovering/Resolving]
  - Dysphonia [Not Recovered/Not Resolved]

NARRATIVE: CASE EVENT DATE: 20180709
